FAERS Safety Report 19728262 (Version 8)
Quarter: 2025Q2

REPORT INFORMATION
  Report Type: Report from Study
  Country: CA (occurrence: CA)
  Receive Date: 20210820
  Receipt Date: 20250519
  Transmission Date: 20250717
  Serious: Yes (Hospitalization, Other)
  Sender: ROCHE
  Company Number: CA-002147023-PHHY2014CA141543

PATIENT
  Age: 36 Year
  Sex: Female

DRUGS (7)
  1. XOLAIR [Suspect]
     Active Substance: OMALIZUMAB
     Indication: Asthma
     Route: 058
     Dates: start: 20141024
  2. XOLAIR [Suspect]
     Active Substance: OMALIZUMAB
     Route: 058
     Dates: start: 20170720
  3. CETIRIZINE [Concomitant]
     Active Substance: CETIRIZINE HYDROCHLORIDE
     Indication: Product used for unknown indication
  4. SYNTHROID [Concomitant]
     Active Substance: LEVOTHYROXINE SODIUM
     Indication: Product used for unknown indication
  5. PULMICORT TURBUHALER [Concomitant]
     Active Substance: BUDESONIDE
     Indication: Product used for unknown indication
  6. ALBUTEROL [Concomitant]
     Active Substance: ALBUTEROL
     Indication: Product used for unknown indication
     Route: 005
  7. SYMBICORT [Concomitant]
     Active Substance: BUDESONIDE\FORMOTEROL FUMARATE DIHYDRATE
     Indication: Product used for unknown indication

REACTIONS (23)
  - Tachycardia [Unknown]
  - Discomfort [Unknown]
  - Asthma [Unknown]
  - Sensitivity to weather change [Unknown]
  - Smoke sensitivity [Unknown]
  - Perfume sensitivity [Unknown]
  - Allergy to animal [Unknown]
  - Allergy to chemicals [Unknown]
  - Forced expiratory volume decreased [Unknown]
  - Dyspepsia [Unknown]
  - Injection site erythema [Unknown]
  - Cough [Unknown]
  - Heart rate decreased [Unknown]
  - Injection site urticaria [Unknown]
  - Dyspnoea [Unknown]
  - Terminal insomnia [Unknown]
  - Wheezing [Unknown]
  - Middle insomnia [Unknown]
  - Insomnia [Unknown]
  - Sleep disorder [Unknown]
  - Stress [Unknown]
  - Weight increased [Unknown]
  - Off label use [Unknown]

NARRATIVE: CASE EVENT DATE: 20141024
